FAERS Safety Report 9524603 (Version 1)
Quarter: 2013Q3

REPORT INFORMATION
  Report Type: Spontaneous
  Country: US (occurrence: US)
  Receive Date: 20130916
  Receipt Date: 20130916
  Transmission Date: 20140515
  Serious: No
  Sender: FDA-Public Use
  Company Number: US-PFIZER INC-2013263959

PATIENT
  Age: 65 Year
  Sex: Female

DRUGS (2)
  1. ZOLOFT [Suspect]
     Dosage: UNK
  2. ABILIFY [Suspect]
     Indication: BIPOLAR DISORDER
     Dosage: 400 MG, DAILY
     Dates: start: 201308

REACTIONS (3)
  - Hypersensitivity [Unknown]
  - Pruritus [Unknown]
  - Rash [Unknown]
